FAERS Safety Report 7769565-6 (Version None)
Quarter: 2011Q3

REPORT INFORMATION
  Report Type: 
  Country: None (occurrence: None)
  Receive Date: 20110922
  Receipt Date: 20100915
  Transmission Date: 20111222
  Serious: No
  Sender: FDA-Public Use
  Company Number: US-ASTRAZENECA-2007UW12226

PATIENT
  Age: 19329 Day
  Sex: Male
  Weight: 112.5 kg

DRUGS (18)
  1. SEROQUEL [Suspect]
     Dosage: 25 MG
     Route: 048
     Dates: start: 20040301
  2. REMERON [Concomitant]
     Indication: INSOMNIA
     Dosage: 15 MG-30 MG,EVERY NIGHT
     Route: 048
     Dates: start: 20040324
  3. TAMSULOSIN HCL [Concomitant]
     Route: 048
  4. SEROQUEL [Suspect]
     Dosage: 25 MG TWO TIME A DAY, 50 MG, 100 MG EVERY NIGHT
     Route: 048
     Dates: start: 20040324
  5. SEROQUEL [Suspect]
     Route: 048
     Dates: start: 20061106
  6. SEROQUEL [Suspect]
     Indication: MOOD ALTERED
     Dosage: 75-150 MG
     Route: 048
     Dates: start: 20040324, end: 20061017
  7. SEROQUEL [Suspect]
     Dosage: 25 MG
     Route: 048
     Dates: start: 20040301
  8. ASPIRIN [Concomitant]
     Route: 048
  9. SEROQUEL [Suspect]
     Indication: DEPRESSION
     Dosage: 75-150 MG
     Route: 048
     Dates: start: 20040324, end: 20061017
  10. PROZAC [Concomitant]
     Route: 048
  11. ATORVASTATIN [Concomitant]
     Indication: BLOOD CHOLESTEROL
     Dosage: 1 TABLET AT BEDTIME FOR 10 DAYS, 1/2 TABLET AT BEDTIME
     Route: 048
  12. SEROQUEL [Suspect]
     Route: 048
     Dates: start: 20061106
  13. REMERON [Concomitant]
     Indication: DEPRESSIVE SYMPTOM
     Dosage: 15 MG-30 MG,EVERY NIGHT
     Route: 048
     Dates: start: 20040324
  14. METFORMIN [Concomitant]
  15. SEROQUEL [Suspect]
     Dosage: 25 MG TWO TIME A DAY, 50 MG, 100 MG EVERY NIGHT
     Route: 048
     Dates: start: 20040324
  16. FENOFIBRATE [Concomitant]
     Indication: HYPERLIPIDAEMIA
     Route: 048
  17. LISINOPRIL [Concomitant]
     Indication: HYPERTENSION
     Dates: start: 20040324
  18. AMLODIPINE [Concomitant]
     Dosage: 2.5 MG, 5 MG, 10 MG, AT BED TIME
     Dates: end: 20050920

REACTIONS (3)
  - METABOLIC SYNDROME [None]
  - VIITH NERVE PARALYSIS [None]
  - TYPE 2 DIABETES MELLITUS [None]
